FAERS Safety Report 21045950 (Version 1)
Quarter: 2022Q3

REPORT INFORMATION
  Report Type: Spontaneous
  Country: US (occurrence: US)
  Receive Date: 20220706
  Receipt Date: 20220706
  Transmission Date: 20221026
  Serious: Yes (Hospitalization, Other)
  Sender: FDA-Public Use
  Company Number: US-MLMSERVICE-20220620-3625100-1

PATIENT
  Age: 32 Year
  Sex: Female

DRUGS (30)
  1. HYDROCORTISONE BUTYRATE [Suspect]
     Active Substance: HYDROCORTISONE BUTYRATE
     Indication: Nervous system disorder
     Dosage: UNK
     Route: 065
     Dates: start: 202007
  2. HYDROCORTISONE BUTYRATE [Suspect]
     Active Substance: HYDROCORTISONE BUTYRATE
     Dosage: EVERY TWO WEEKS FOR FIVE CYCLES
     Route: 065
     Dates: start: 202001, end: 2020
  3. ADRIAMYCIN [Suspect]
     Active Substance: DOXORUBICIN HYDROCHLORIDE
     Indication: B precursor type acute leukaemia
     Dosage: UNK
     Route: 065
     Dates: start: 201904, end: 2019
  4. ADRIAMYCIN [Suspect]
     Active Substance: DOXORUBICIN HYDROCHLORIDE
     Dosage: CYCLE 3 PART A WAS INTERRUPTED
     Route: 065
     Dates: start: 202102, end: 202105
  5. ADRIAMYCIN [Suspect]
     Active Substance: DOXORUBICIN HYDROCHLORIDE
     Dosage: UNK
     Route: 065
     Dates: end: 202107
  6. MITOXANTRONE [Suspect]
     Active Substance: MITOXANTRONE HYDROCHLORIDE
     Indication: B precursor type acute leukaemia
     Dosage: 1 CYCLE
     Route: 065
     Dates: start: 202101, end: 2021
  7. METHOTREXATE [Suspect]
     Active Substance: METHOTREXATE
     Indication: Nervous system disorder prophylaxis
     Dosage: UNK
     Route: 037
     Dates: start: 201904
  8. METHOTREXATE [Suspect]
     Active Substance: METHOTREXATE
     Indication: B precursor type acute leukaemia
     Dosage: UNK
     Route: 065
     Dates: start: 201908, end: 202001
  9. METHOTREXATE [Suspect]
     Active Substance: METHOTREXATE
     Indication: Nervous system disorder
     Dosage: HIGH-DOSE
     Route: 065
     Dates: start: 202001
  10. METHOTREXATE [Suspect]
     Active Substance: METHOTREXATE
     Dosage: EVERY TWO WEEKS FOR FIVE CYCLES
     Route: 037
     Dates: start: 202001, end: 2020
  11. METHOTREXATE [Suspect]
     Active Substance: METHOTREXATE
     Dosage: UNK
     Route: 037
     Dates: start: 202007
  12. VINCRISTINE SULFATE [Suspect]
     Active Substance: VINCRISTINE SULFATE
     Indication: B precursor type acute leukaemia
     Dosage: UNK
     Route: 065
     Dates: start: 201904, end: 2019
  13. VINCRISTINE SULFATE [Suspect]
     Active Substance: VINCRISTINE SULFATE
     Dosage: UNK; CYCLE 3 PART A WAS INTERRUPTED
     Route: 065
     Dates: start: 202102, end: 202105
  14. VINCRISTINE SULFATE [Suspect]
     Active Substance: VINCRISTINE SULFATE
     Dosage: UNK
     Route: 065
     Dates: end: 202107
  15. ETOPOSIDE [Suspect]
     Active Substance: ETOPOSIDE
     Indication: B precursor type acute leukaemia
     Dosage: 1 CYCLE
     Route: 065
     Dates: start: 202101, end: 2021
  16. CYCLOPHOSPHAMIDE [Suspect]
     Active Substance: CYCLOPHOSPHAMIDE
     Indication: B precursor type acute leukaemia
     Dosage: UNK
     Route: 065
     Dates: start: 201904, end: 2019
  17. CYCLOPHOSPHAMIDE [Suspect]
     Active Substance: CYCLOPHOSPHAMIDE
     Dosage: UNK
     Route: 065
     Dates: end: 202107
  18. CYCLOPHOSPHAMIDE [Suspect]
     Active Substance: CYCLOPHOSPHAMIDE
     Dosage: CYCLE 3 PART A WAS INTERRUPTED
     Route: 065
     Dates: start: 202102, end: 202105
  19. PREDNISONE [Suspect]
     Active Substance: PREDNISONE
     Indication: B precursor type acute leukaemia
     Dosage: UNK
     Route: 065
     Dates: start: 201908, end: 202001
  20. CYTARABINE [Suspect]
     Active Substance: CYTARABINE
     Indication: Nervous system disorder
     Dosage: UNK
     Route: 065
     Dates: start: 201904
  21. CYTARABINE [Suspect]
     Active Substance: CYTARABINE
     Indication: Nervous system disorder prophylaxis
     Dosage: EVERY TWO WEEKS FOR FIVE CYCLES
     Route: 065
     Dates: start: 202001, end: 2020
  22. CYTARABINE [Suspect]
     Active Substance: CYTARABINE
     Dosage: UNK
     Route: 065
     Dates: start: 202007
  23. DASATINIB [Suspect]
     Active Substance: DASATINIB
     Indication: Product used for unknown indication
     Dosage: UNK
     Route: 065
     Dates: start: 2019
  24. DEXAMETHASONE [Suspect]
     Active Substance: DEXAMETHASONE
     Indication: B precursor type acute leukaemia
     Dosage: UNK
     Route: 065
     Dates: start: 201904, end: 2019
  25. DEXAMETHASONE [Suspect]
     Active Substance: DEXAMETHASONE
     Dosage: UNK
     Route: 065
     Dates: end: 202107
  26. DEXAMETHASONE [Suspect]
     Active Substance: DEXAMETHASONE
     Dosage: CYCLE 3 PART A WAS INTERRUPTED
     Route: 065
     Dates: start: 202102, end: 202105
  27. VINCRISTINE [Suspect]
     Active Substance: VINCRISTINE
     Indication: B precursor type acute leukaemia
     Dosage: UNK
     Route: 065
     Dates: start: 201908, end: 202001
  28. IFOSFAMIDE [Suspect]
     Active Substance: IFOSFAMIDE
     Indication: B precursor type acute leukaemia
     Dosage: UNK; 1 CYCLICAL
     Route: 065
     Dates: start: 202101, end: 2021
  29. MERCAPTOPURINE [Suspect]
     Active Substance: MERCAPTOPURINE
     Indication: B precursor type acute leukaemia
     Dosage: UNK
     Route: 065
     Dates: start: 201908, end: 202001
  30. ISONIAZID [Concomitant]
     Active Substance: ISONIAZID
     Indication: Tuberculosis
     Dosage: UNK
     Route: 065

REACTIONS (6)
  - Strongyloidiasis [Recovering/Resolving]
  - Pericardial effusion [Recovering/Resolving]
  - Acute respiratory failure [Recovering/Resolving]
  - Pulmonary oedema [Recovering/Resolving]
  - Staphylococcal infection [Recovering/Resolving]
  - Appendicitis [Unknown]

NARRATIVE: CASE EVENT DATE: 20210501
